FAERS Safety Report 14109252 (Version 5)
Quarter: 2018Q1

REPORT INFORMATION
  Report Type: Spontaneous
  Country: US (occurrence: US)
  Receive Date: 20171019
  Receipt Date: 20180116
  Transmission Date: 20180508
  Serious: Yes (Death, Hospitalization)
  Sender: FDA-Public Use
  Company Number: US-MITSUBISHI TANABE PHARMA CORPORATION-MPE2017-0021765

PATIENT
  Age: 45 Year
  Sex: Female
  Weight: 42.75 kg

DRUGS (8)
  1. COQ10 [Concomitant]
     Active Substance: UBIDECARENONE
     Route: 065
  2. IBUPROFEN. [Concomitant]
     Active Substance: IBUPROFEN
     Route: 065
  3. MELATONIN [Concomitant]
     Active Substance: MELATONIN
     Route: 065
  4. MODAFENIL [Concomitant]
     Route: 065
  5. RADICAVA [Suspect]
     Active Substance: EDARAVONE
     Indication: AMYOTROPHIC LATERAL SCLEROSIS
     Route: 041
     Dates: start: 20170913, end: 20170929
  6. TEMAZEPAM. [Concomitant]
     Active Substance: TEMAZEPAM
     Route: 065
     Dates: start: 20170919
  7. RILUZOLE. [Concomitant]
     Active Substance: RILUZOLE
     Route: 065
     Dates: start: 20170612
  8. NITROFURANTOIN. [Concomitant]
     Active Substance: NITROFURANTOIN
     Route: 065
     Dates: end: 201707

REACTIONS (4)
  - Aspiration [Fatal]
  - Cardiac arrest [Fatal]
  - Amyotrophic lateral sclerosis [Fatal]
  - Status epilepticus [Fatal]

NARRATIVE: CASE EVENT DATE: 20171008
